FAERS Safety Report 4911656-9 (Version None)
Quarter: 2006Q1

REPORT INFORMATION
  Report Type: 
  Country: None (occurrence: None)
  Receive Date: 20060213
  Receipt Date: 20060203
  Transmission Date: 20060701
  Serious: Yes (Death)
  Sender: FDA-Public Use
  Company Number: 2006003122

PATIENT
  Age: 61 Year
  Sex: Male

DRUGS (4)
  1. GEODON [Suspect]
     Indication: SCHIZOAFFECTIVE DISORDER
     Dosage: 20 MG (20 MG, ONCE), INTRAMUSCULAR
     Route: 030
     Dates: start: 20051222, end: 20051222
  2. THORAZINE [Concomitant]
  3. LITHIUM [Concomitant]
  4. NORVASC [Concomitant]

REACTIONS (5)
  - AGITATION [None]
  - CARDIO-RESPIRATORY ARREST [None]
  - CHEST PAIN [None]
  - MOANING [None]
  - TREATMENT NONCOMPLIANCE [None]
